FAERS Safety Report 23165373 (Version 1)
Quarter: 2023Q4

REPORT INFORMATION
  Report Type: Report from Study
  Country: CA (occurrence: CA)
  Receive Date: 20231109
  Receipt Date: 20231109
  Transmission Date: 20240110
  Serious: Yes (Other)
  Sender: FDA-Public Use
  Company Number: CA-UCBSA-2022050109

PATIENT
  Age: 56 Year
  Sex: Male

DRUGS (3)
  1. CERTOLIZUMAB PEGOL [Suspect]
     Active Substance: CERTOLIZUMAB PEGOL
     Indication: Axial spondyloarthritis
     Dosage: 400 MILLIGRAM, EV 2 WEEKS(QOW)
     Route: 058
     Dates: start: 20200326
  2. CERTOLIZUMAB PEGOL [Suspect]
     Active Substance: CERTOLIZUMAB PEGOL
     Dosage: 400 MILLIGRAM, EV 4 WEEKS
     Route: 058
  3. CERTOLIZUMAB PEGOL [Suspect]
     Active Substance: CERTOLIZUMAB PEGOL
     Dosage: 200 MILLIGRAM, EV 4 WEEKS
     Route: 058

REACTIONS (12)
  - Ankylosing spondylitis [Unknown]
  - Tendonitis [Recovered/Resolved]
  - Pain [Recovered/Resolved]
  - Psoriasis [Unknown]
  - Myalgia [Unknown]
  - Taste disorder [Unknown]
  - SARS-CoV-2 test positive [Unknown]
  - Fatigue [Unknown]
  - Musculoskeletal pain [Unknown]
  - Joint swelling [Unknown]
  - Skin laceration [Unknown]
  - Nasal congestion [Unknown]

NARRATIVE: CASE EVENT DATE: 20221001
